FAERS Safety Report 5233247-5 (Version None)
Quarter: 2007Q1

REPORT INFORMATION
  Report Type: 
  Country: None (occurrence: None)
  Receive Date: 20070206
  Receipt Date: 20070123
  Transmission Date: 20070707
  Serious: Yes (Other)
  Sender: FDA-Public Use
  Company Number: SOS-2007-003

PATIENT
  Sex: Male

DRUGS (4)
  1. ANTABUSE [Suspect]
     Indication: ALCOHOLISM
     Dates: start: 20061201
  2. CAMPRAL [Suspect]
     Indication: ALCOHOLISM
     Dates: start: 20061201
  3. CAMPRAL [Suspect]
     Indication: ALCOHOLISM
     Dates: start: 20070101
  4. ANTIDEPRESSANT [Concomitant]

REACTIONS (1)
  - DYSSTASIA [None]
